FAERS Safety Report 6720006-7 (Version None)
Quarter: 2010Q2

REPORT INFORMATION
  Report Type: 
  Country: None (occurrence: None)
  Receive Date: 20100511
  Receipt Date: 20100505
  Transmission Date: 20101027
  Serious: Yes (Hospitalization, Other)
  Sender: FDA-Public Use
  Company Number: US-ELI_LILLY_AND_COMPANY-US201005001585

PATIENT
  Age: 39 Year
  Sex: Male

DRUGS (2)
  1. HUMULIN R [Suspect]
     Indication: TYPE 2 DIABETES MELLITUS
     Dosage: 31 U, 2/D
     Dates: start: 20090101
  2. HUMALOG [Suspect]
     Dosage: 120 U, OTHER

REACTIONS (4)
  - BLOOD GLUCOSE INCREASED [None]
  - DIABETIC KETOACIDOSIS [None]
  - DRUG LABEL CONFUSION [None]
  - PRODUCT QUALITY ISSUE [None]
